FAERS Safety Report 8377744-2 (Version None)
Quarter: 2012Q2

REPORT INFORMATION
  Report Type: 
  Country: None (occurrence: None)
  Receive Date: 20120522
  Receipt Date: 20120516
  Transmission Date: 20120825
  Serious: Yes (Other)
  Sender: FDA-Public Use
  Company Number: JP-GLAXOSMITHKLINE-B0802188A

PATIENT
  Sex: Male

DRUGS (4)
  1. FLUTICASONE PROPIONATE/SALMETEROL [Suspect]
     Indication: ASTHMA
     Dosage: 500MCG PER DAY
     Route: 055
     Dates: start: 20111202, end: 20120101
  2. FLUTICASONE PROPIONATE/SALMETEROL [Suspect]
     Dosage: 500MCG PER DAY
     Route: 055
     Dates: start: 20120201, end: 20120317
  3. FLUTICASONE PROPIONATE [Suspect]
     Indication: ASTHMA
     Dates: start: 20120101
  4. MEPTIN [Concomitant]
     Route: 055

REACTIONS (5)
  - CHEST X-RAY ABNORMAL [None]
  - EOSINOPHIL COUNT INCREASED [None]
  - PNEUMONIA [None]
  - PYREXIA [None]
  - LYMPHOCYTE STIMULATION TEST POSITIVE [None]
